FAERS Safety Report 24748295 (Version 1)
Quarter: 2024Q4

REPORT INFORMATION
  Report Type: Spontaneous
  Country: US (occurrence: None)
  Receive Date: 20241217
  Receipt Date: 20241217
  Transmission Date: 20250115
  Serious: No
  Sender: Public
  Company Number: None

PATIENT
  Age: 82 Year
  Sex: Male
  Weight: 72 kg

DRUGS (5)
  1. RAMELTEON [Suspect]
     Active Substance: RAMELTEON
     Indication: Insomnia
     Dosage: 30 TABLETS AT BEDTIME ORAL
     Route: 048
     Dates: start: 20241216, end: 20241216
  2. ATENOLOL [Concomitant]
     Active Substance: ATENOLOL
  3. TAMSULOSIN [Concomitant]
     Active Substance: TAMSULOSIN
  4. DOCUSATE SODIUM [Concomitant]
     Active Substance: DOCUSATE SODIUM
  5. VITAMIN D3 [Concomitant]
     Active Substance: CHOLECALCIFEROL

REACTIONS (3)
  - Abnormal dreams [None]
  - Nightmare [None]
  - Somnolence [None]

NARRATIVE: CASE EVENT DATE: 20241216
